FAERS Safety Report 21707762 (Version 1)
Quarter: 2022Q4

REPORT INFORMATION
  Report Type: Other
  Country: None (occurrence: IN)
  Receive Date: 20221209
  Receipt Date: 20221209
  Transmission Date: 20230112
  Serious: Yes (Hospitalization, Other)
  Sender: FDA-Public Use
  Company Number: IN-B.Braun Medical Inc.-2135729

PATIENT
  Age: 71 Year
  Sex: Female

DRUGS (1)
  1. HEPARIN SODIUM IN DEXTROSE [Suspect]
     Active Substance: HEPARIN SODIUM

REACTIONS (5)
  - Spinal epidural haemorrhage [Recovered/Resolved]
  - Haematuria [Recovered/Resolved]
  - Intraventricular haemorrhage [Recovered/Resolved]
  - Spinal cord oedema [Recovered/Resolved]
  - Spinal subdural haematoma [Recovered/Resolved]
